FAERS Safety Report 24200661 (Version 1)
Quarter: 2024Q3

REPORT INFORMATION
  Report Type: Spontaneous
  Country: US (occurrence: US)
  Receive Date: 20240812
  Receipt Date: 20240812
  Transmission Date: 20241016
  Serious: No
  Sender: ANI
  Company Number: US-ANIPHARMA-2024-US-034335

PATIENT
  Sex: Female

DRUGS (28)
  1. CORTICOTROPIN [Suspect]
     Active Substance: CORTICOTROPIN
     Indication: Multiple sclerosis
     Dosage: DAILY
     Route: 058
  2. FLUCONAZOLE [Concomitant]
     Active Substance: FLUCONAZOLE
  3. GLIPIZIDE [Concomitant]
     Active Substance: GLIPIZIDE
  4. GLUCOSAMINE/CHONDROITIN D [Concomitant]
  5. CLOTRIMAZOLE [Concomitant]
     Active Substance: CLOTRIMAZOLE
  6. DILTIAZEM HYDROCHLORIDE [Concomitant]
     Active Substance: DILTIAZEM HYDROCHLORIDE
  7. LISINOPRIL [Concomitant]
     Active Substance: LISINOPRIL
  8. BACLOFEN [Concomitant]
     Active Substance: BACLOFEN
  9. CALTRATE 600+D PLUS MINERALS [Concomitant]
  10. VITAMINS [Concomitant]
     Active Substance: VITAMINS
  11. NIACIN [Concomitant]
     Active Substance: NIACIN
  12. ZOLPIDEM TARTRATE [Concomitant]
     Active Substance: ZOLPIDEM TARTRATE
  13. NYSTATIN [Concomitant]
     Active Substance: NYSTATIN
  14. PANTOPRAZOLE SODIUM [Concomitant]
     Active Substance: PANTOPRAZOLE SODIUM
  15. ALBUTEROL SULFATE [Concomitant]
     Active Substance: ALBUTEROL SULFATE
  16. RYALTRIS [Concomitant]
     Active Substance: MOMETASONE FUROATE MONOHYDRATE\OLOPATADINE HYDROCHLORIDE
  17. HYDROCHLOROTHIAZIDE [Concomitant]
     Active Substance: HYDROCHLOROTHIAZIDE
  18. LEVOTHYROXINE SODIUM [Concomitant]
     Active Substance: LEVOTHYROXINE SODIUM
  19. MODAFINIL [Concomitant]
     Active Substance: MODAFINIL
  20. MONTELUKAST SODIUM [Concomitant]
     Active Substance: MONTELUKAST SODIUM
  21. CELECOXIB [Concomitant]
     Active Substance: CELECOXIB
  22. BRIMONIDINE TARTRATE [Concomitant]
     Active Substance: BRIMONIDINE TARTRATE
  23. TYLENOL EXTRA STRENGTH [Concomitant]
     Active Substance: ACETAMINOPHEN
  24. ZYRTEC [Concomitant]
     Active Substance: CETIRIZINE HYDROCHLORIDE
  25. TRELEGY ELLIPTA [Concomitant]
     Active Substance: FLUTICASONE FUROATE\UMECLIDINIUM BROMIDE\VILANTEROL TRIFENATATE
  26. D2000 ULTRA STRENGTH [Concomitant]
  27. EPINEPHRINE [Concomitant]
     Active Substance: EPINEPHRINE
  28. FAMOTIDINE [Concomitant]
     Active Substance: FAMOTIDINE

REACTIONS (1)
  - Gait disturbance [Unknown]
